FAERS Safety Report 8792226 (Version 1)
Quarter: 2012Q4

REPORT INFORMATION
  Report Type: 
  Country: US (occurrence: US)
  Receive Date: 20120918
  Receipt Date: 20120918
  Transmission Date: 20130627
  Serious: No
  Sender: FDA-Public Use
  Company Number: US-VERTEX PHARMACEUTICAL INC.-AE-2012-010835

PATIENT
  Age: 55 Year
  Sex: Male
  Weight: 106 kg

DRUGS (8)
  1. VX-950 [Suspect]
     Indication: HEPATITIS C
     Dosage: 750 mg, tid
     Route: 048
  2. RIBAVIRIN [Concomitant]
     Indication: HEPATITIS C
  3. PEG-INTRON [Concomitant]
     Indication: HEPATITIS C
  4. NUCYNTA [Concomitant]
  5. ZANAFLEX [Concomitant]
  6. BACLOFEN [Concomitant]
  7. PROMETHAZINE [Concomitant]
     Dosage: 12.5 mg, UNK
  8. CELEXA                             /00582602/ [Concomitant]
     Dosage: 200 mg, UNK

REACTIONS (15)
  - Dyspnoea [Unknown]
  - Depression [Unknown]
  - Melaena [Unknown]
  - Headache [Unknown]
  - Pyrexia [Unknown]
  - Cough [Unknown]
  - Disturbance in attention [Unknown]
  - Insomnia [Unknown]
  - Hair texture abnormal [Not Recovered/Not Resolved]
  - Alopecia [Not Recovered/Not Resolved]
  - Chills [Unknown]
  - Fatigue [Not Recovered/Not Resolved]
  - Anaemia [Unknown]
  - Nausea [Unknown]
  - Diarrhoea [Not Recovered/Not Resolved]
